FAERS Safety Report 7913920-8 (Version None)
Quarter: 2011Q4

REPORT INFORMATION
  Report Type: 
  Country: None (occurrence: None)
  Receive Date: 20111115
  Receipt Date: 20111108
  Transmission Date: 20120403
  Serious: Yes (Other)
  Sender: FDA-Public Use
  Company Number: US-PFIZER INC-2011274023

PATIENT
  Sex: Male

DRUGS (7)
  1. PLAVIX [Concomitant]
     Dosage: UNK
     Dates: end: 20110101
  2. LIPITOR [Suspect]
     Indication: BLOOD CHOLESTEROL
     Dosage: UNK
     Dates: end: 20110101
  3. METOPROLOL TARTRATE [Suspect]
     Dosage: 1/4 TABLET (12.5 MG), DAILY
     Route: 048
  4. ACETYLSALICYLIC ACID [Concomitant]
     Dosage: UNK
  5. MULTAQ [Suspect]
     Indication: ATRIAL FIBRILLATION
     Dosage: 400 MG, 2X/DAY
     Route: 048
     Dates: start: 20101001
  6. FLECAINIDE [Concomitant]
     Dosage: UNK
  7. WARFARIN [Concomitant]
     Dosage: UNK

REACTIONS (10)
  - ATRIAL FIBRILLATION [None]
  - FATIGUE [None]
  - MYALGIA [None]
  - DIZZINESS [None]
  - ABDOMINAL PAIN [None]
  - ASTHENIA [None]
  - MUSCULOSKELETAL PAIN [None]
  - SYNCOPE [None]
  - ARTHRALGIA [None]
  - ABDOMINAL TENDERNESS [None]
